FAERS Safety Report 20398479 (Version 1)
Quarter: 2022Q1

REPORT INFORMATION
  Report Type: Spontaneous
  Country: US (occurrence: US)
  Receive Date: 20220131
  Receipt Date: 20220131
  Transmission Date: 20220423
  Serious: No
  Sender: FDA-Public Use
  Company Number: US-ABBVIE-21K-163-3761949-00

PATIENT
  Age: 54 Year
  Sex: Female
  Weight: 56.296 kg

DRUGS (4)
  1. HUMIRA [Suspect]
     Active Substance: ADALIMUMAB
     Indication: Rheumatoid arthritis
     Route: 058
     Dates: start: 2019
  2. LISINOPRIL [Concomitant]
     Active Substance: LISINOPRIL
     Indication: Hypertension
  3. PROZAC [Concomitant]
     Active Substance: FLUOXETINE HYDROCHLORIDE
     Indication: Gastric disorder
  4. IBUPROFEN [Concomitant]
     Active Substance: IBUPROFEN
     Indication: Pain

REACTIONS (6)
  - Incorrect dose administered [Recovered/Resolved]
  - Incorrect dose administered [Recovered/Resolved]
  - Injury associated with device [Unknown]
  - Injection site pain [Recovered/Resolved]
  - Device issue [Recovered/Resolved]
  - Device issue [Recovered/Resolved]

NARRATIVE: CASE EVENT DATE: 20210101
